FAERS Safety Report 13163487 (Version 2)
Quarter: 2017Q2

REPORT INFORMATION
  Report Type: Spontaneous
  Country: DE (occurrence: DE)
  Receive Date: 20170130
  Receipt Date: 20170418
  Transmission Date: 20170830
  Serious: Yes (Other)
  Sender: FDA-Public Use
  Company Number: DE-ALEXION PHARMACEUTICALS INC.-A201700583

PATIENT
  Age: 12 Year
  Sex: Female

DRUGS (4)
  1. PENICILLIN                         /00000901/ [Concomitant]
     Active Substance: PENICILLIN G
     Indication: ANTIBIOTIC PROPHYLAXIS
     Route: 065
  2. SOLIRIS [Suspect]
     Active Substance: ECULIZUMAB
     Indication: HAEMOLYTIC URAEMIC SYNDROME
     Dosage: UNK
     Route: 042
     Dates: start: 201608
  3. CEFACLOR. [Concomitant]
     Active Substance: CEFACLOR
     Indication: ANTIBIOTIC PROPHYLAXIS
     Route: 065
  4. SOLIRIS [Suspect]
     Active Substance: ECULIZUMAB
     Dosage: 600 MG, UNK, EVERY FOURTEEN DAYS
     Dates: start: 201608

REACTIONS (4)
  - Drug ineffective [Recovered/Resolved]
  - Incorrect dose administered [Unknown]
  - Thrombotic microangiopathy [Unknown]
  - Inappropriate schedule of drug administration [Unknown]

NARRATIVE: CASE EVENT DATE: 20170110
